FAERS Safety Report 5043789-3 (Version None)
Quarter: 2006Q2

REPORT INFORMATION
  Report Type: 
  Country: None (occurrence: None)
  Receive Date: 20060629
  Receipt Date: 20060616
  Transmission Date: 20061013
  Serious: Yes (Hospitalization)
  Sender: FDA-Public Use
  Company Number: 2006EU001867

PATIENT
  Age: 58 Year
  Sex: Female

DRUGS (3)
  1. FK506            (TACROLIMUS) [Suspect]
     Indication: RENAL TRANSPLANT
     Dosage: UNK, UNKNOWN/D, ORAL
     Route: 048
     Dates: start: 20060510
  2. EVEROLIMUS                 (EVEROLIMUS) [Suspect]
     Indication: RENAL TRANSPLANT
     Dosage: 3 MG, UNKNOWN/D, ORAL
     Route: 048
     Dates: start: 20060511
  3. PREDNISONE                           (PREDNISONE ACETATE) [Concomitant]

REACTIONS (1)
  - LYMPHOCELE [None]
